FAERS Safety Report 15159724 (Version 1)
Quarter: 2018Q3

REPORT INFORMATION
  Report Type: Report from Study
  Country: BR (occurrence: BR)
  Receive Date: 20180718
  Receipt Date: 20180718
  Transmission Date: 20181010
  Serious: Yes (Other)
  Sender: FDA-Public Use
  Company Number: PHHY2018BR042754

PATIENT
  Sex: Female
  Weight: 48 kg

DRUGS (8)
  1. ISOFLAVONA DE SOYA + VIT. D + CALCIO COLMED [Suspect]
     Active Substance: CALCIUM CITRATE\CHOLECALCIFEROL\ISOFLAVONES SOY
     Indication: PALPITATIONS
  2. CLONAZEPAM. [Suspect]
     Active Substance: CLONAZEPAM
     Indication: SLEEP DISORDER
     Dosage: UNK (CONC 0.5)
     Route: 065
  3. LOSARTAN. [Suspect]
     Active Substance: LOSARTAN
     Indication: HYPERTENSION
     Dosage: UNK UNK, BID
     Route: 065
  4. ISOFLAVONA DE SOYA + VIT. D + CALCIO COLMED [Suspect]
     Active Substance: CALCIUM CITRATE\CHOLECALCIFEROL\ISOFLAVONES SOY
     Indication: LIVER DISORDER
  5. RIVOTRIL [Suspect]
     Active Substance: CLONAZEPAM
     Indication: PRODUCT USED FOR UNKNOWN INDICATION
     Dosage: UNK UNK, QD
     Route: 065
  6. SYSTANE (HYPROMELLOSE 2910 (4000 MPA.S)) [Suspect]
     Active Substance: HYPROMELLOSE 2910 (4000 MPA.S)
     Indication: PRODUCT USED FOR UNKNOWN INDICATION
     Dosage: UNK
     Route: 047
  7. ISOFLAVONA DE SOYA + VIT. D + CALCIO COLMED [Suspect]
     Active Substance: CALCIUM CITRATE\CHOLECALCIFEROL\ISOFLAVONES SOY
     Indication: DEPRESSION
  8. ISOFLAVONA DE SOYA + VIT. D + CALCIO COLMED [Suspect]
     Active Substance: CALCIUM CITRATE\CHOLECALCIFEROL\ISOFLAVONES SOY
     Indication: BONE DISORDER
     Dosage: UNK
     Route: 065

REACTIONS (8)
  - Liver disorder [Unknown]
  - Dengue fever [Unknown]
  - Depression [Unknown]
  - Weight gain poor [Unknown]
  - Viral infection [Unknown]
  - Decreased appetite [Unknown]
  - Dysgeusia [Unknown]
  - Intraocular pressure increased [Unknown]
